FAERS Safety Report 7432724-6 (Version None)
Quarter: 2011Q2

REPORT INFORMATION
  Report Type: 
  Country: None (occurrence: None)
  Receive Date: 20110422
  Receipt Date: 20110418
  Transmission Date: 20111010
  Serious: Yes (Death, Hospitalization)
  Sender: FDA-Public Use
  Company Number: A0905608A

PATIENT
  Age: 61 Year
  Sex: Male

DRUGS (1)
  1. AVANDIA [Suspect]
     Indication: DIABETES MELLITUS
     Dosage: 4MG TWICE PER DAY
     Route: 048
     Dates: start: 20000413, end: 20091031

REACTIONS (3)
  - CARDIOGENIC SHOCK [None]
  - HYPOXIC-ISCHAEMIC ENCEPHALOPATHY [None]
  - ACUTE MYOCARDIAL INFARCTION [None]
